FAERS Safety Report 8012918-1 (Version None)
Quarter: 2011Q4

REPORT INFORMATION
  Report Type: 
  Country: None (occurrence: None)
  Receive Date: 20111229
  Receipt Date: 20111221
  Transmission Date: 20120403
  Serious: Yes (Hospitalization)
  Sender: FDA-Public Use
  Company Number: US-ASTELLAS-2011US006405

PATIENT

DRUGS (2)
  1. PROGRAF [Suspect]
     Indication: RENAL TRANSPLANT
     Dosage: 2 MG, BID
     Route: 048
     Dates: start: 20080421
  2. PREDNISONE TAB [Concomitant]
     Indication: PRODUCT USED FOR UNKNOWN INDICATION
     Dosage: UNK
     Route: 065

REACTIONS (2)
  - COLON CANCER [None]
  - ADENOCARCINOMA [None]
